FAERS Safety Report 8502164 (Version 2)
Quarter: 2013Q4

REPORT INFORMATION
  Report Type: Spontaneous
  Country: US (occurrence: US)
  Receive Date: 20120410
  Receipt Date: 20131223
  Transmission Date: 20140711
  Serious: Yes (Hospitalization)
  Sender: FDA-Public Use
  Company Number: US-GLAXOSMITHKLINE-A0972779A

PATIENT
  Age: 57 Year
  Sex: Female
  Weight: 122.5 kg

DRUGS (1)
  1. FLOLAN [Suspect]
     Indication: PULMONARY ARTERIAL HYPERTENSION
     Dosage: 35NGKM UNKNOWN
     Route: 042
     Dates: start: 19981217

REACTIONS (2)
  - Tachycardia [Recovered/Resolved]
  - Dehydration [Recovered/Resolved]
